FAERS Safety Report 7283979-2 (Version None)
Quarter: 2011Q1

REPORT INFORMATION
  Report Type: 
  Country: None (occurrence: None)
  Receive Date: 20110209
  Receipt Date: 20110204
  Transmission Date: 20110831
  Serious: Yes (Hospitalization, Other)
  Sender: FDA-Public Use
  Company Number: BR-ABBOTT-11P-020-0702635-00

PATIENT
  Sex: Female
  Weight: 59 kg

DRUGS (10)
  1. HUMIRA [Suspect]
     Dates: start: 20110204
  2. FEXOFENADINE HCL [Concomitant]
     Indication: PROPHYLAXIS
  3. ALLEGRA D 24 HOUR [Concomitant]
     Indication: PROPHYLAXIS
  4. LISADOR [Concomitant]
     Indication: MIGRAINE
     Dosage: 1 IN 24 HOURS WHEN NECESSARY
     Route: 048
  5. METHOTREXATE [Concomitant]
     Indication: RHEUMATOID ARTHRITIS
     Route: 048
     Dates: start: 20090401
  6. FEXOFENADINE HCL [Concomitant]
     Indication: HYPERSENSITIVITY
     Dosage: 120MG OR 180MG ONCE A DAY
     Route: 048
  7. HUMIRA [Suspect]
     Indication: RHEUMATOID ARTHRITIS
     Route: 058
     Dates: start: 20100501, end: 20110120
  8. MIRENA [Concomitant]
     Indication: PRODUCT USED FOR UNKNOWN INDICATION
     Route: 015
  9. ALLEGRA D 24 HOUR [Concomitant]
     Indication: HYPERSENSITIVITY
     Route: 048
  10. NAPROXEN SODIUM [Concomitant]
     Indication: MIGRAINE
     Dosage: 1 TAB DAILY. 2 TABS FOR INTENSE PAIN
     Route: 048

REACTIONS (12)
  - PELVIC PAIN [None]
  - ALLERGY TO CHEMICALS [None]
  - ADENOMYOSIS [None]
  - ENDOMETRIOSIS [None]
  - RASH PRURITIC [None]
  - CANDIDIASIS [None]
  - ALLERGY TO METALS [None]
  - RASH MACULAR [None]
  - DERMATITIS [None]
  - RHINITIS ALLERGIC [None]
  - MUSCLE SPASMS [None]
  - DRUG HYPERSENSITIVITY [None]
